FAERS Safety Report 20836049 (Version 3)
Quarter: 2022Q2

REPORT INFORMATION
  Report Type: Spontaneous
  Country: US (occurrence: US)
  Receive Date: 20220516
  Receipt Date: 20220619
  Transmission Date: 20220721
  Serious: No
  Sender: FDA-Public Use
  Company Number: US-JNJFOC-20220515756

PATIENT
  Age: 62 Year
  Sex: Male
  Weight: 75.364 kg

DRUGS (2)
  1. TREMFYA [Suspect]
     Active Substance: GUSELKUMAB
     Indication: Psoriatic arthropathy
     Route: 058
     Dates: start: 20220404
  2. TREMFYA [Suspect]
     Active Substance: GUSELKUMAB

REACTIONS (2)
  - Needle issue [Unknown]
  - Product dose omission issue [Unknown]
